FAERS Safety Report 6369242-2 (Version None)
Quarter: 2009Q3

REPORT INFORMATION
  Report Type: 
  Country: None (occurrence: None)
  Receive Date: 20090916
  Receipt Date: 20090908
  Transmission Date: 20100115
  Serious: Yes (Hospitalization)
  Sender: FDA-Public Use
  Company Number: ADR20702009

PATIENT
  Age: 64 Year
  Sex: Male

DRUGS (1)
  1. SERTRALINE HCL [Suspect]
     Dosage: 50MG; ORAL
     Route: 048
     Dates: start: 20060301, end: 20070306

REACTIONS (7)
  - ASTHENIA [None]
  - BALANCE DISORDER [None]
  - CONFUSIONAL STATE [None]
  - CONVULSION [None]
  - HEMIPARESIS [None]
  - MUSCLE TWITCHING [None]
  - TRANSIENT ISCHAEMIC ATTACK [None]
